FAERS Safety Report 8842569 (Version 4)
Quarter: 2013Q4

REPORT INFORMATION
  Report Type: Report from Study
  Country: DE (occurrence: DE)
  Receive Date: 20121016
  Receipt Date: 20131125
  Transmission Date: 20140711
  Serious: Yes (Hospitalization)
  Sender: FDA-Public Use
  Company Number: DE-UCBSA-068724

PATIENT
  Sex: Female
  Weight: 75 kg

DRUGS (17)
  1. CERTOLIZUMAB PEGOL [Suspect]
     Indication: RHEUMATOID ARTHRITIS
     Route: 058
     Dates: start: 20120314, end: 20120811
  2. VIGANTOLETTEN [Concomitant]
     Indication: OSTEOPOROSIS PROPHYLAXIS
     Route: 048
     Dates: start: 20050808
  3. OLMETEC [Concomitant]
     Indication: HYPERTENSION
     Route: 048
     Dates: start: 20100907
  4. MESTINON [Concomitant]
     Indication: MUSCULAR WEAKNESS
     Route: 048
     Dates: start: 20120515
  5. MESTINON [Concomitant]
     Indication: MUSCULAR WEAKNESS
     Route: 048
     Dates: start: 20120612
  6. IBUPROFEN [Concomitant]
     Dosage: DOSE : 800
     Dates: start: 20050307
  7. IBUPROFEN [Concomitant]
     Dosage: DOSE : 600
     Dates: start: 20060110
  8. IBUPROFEN [Concomitant]
     Dosage: DOSE : 600
     Dates: start: 20090420
  9. NEXIUM [Concomitant]
     Dosage: DOSE  : 20
     Dates: start: 20071120
  10. AMITRIPTYLIN [Concomitant]
     Dosage: DOSE  : 10
     Dates: start: 20071120
  11. SULTANOL [Concomitant]
     Dosage: IN THE EVENING AS INHALATION
  12. GOLD [Concomitant]
     Route: 030
  13. GOLD [Concomitant]
     Dosage: DOSE  : 20 MG
     Route: 030
     Dates: start: 20050307
  14. CA/VIT D [Concomitant]
     Indication: RHEUMATOID ARTHRITIS
     Dates: start: 20050808, end: 20060704
  15. CA/VIT D [Concomitant]
     Indication: RHEUMATOID ARTHRITIS
     Dates: start: 20061109, end: 20080701
  16. CA/VIT D [Concomitant]
     Indication: RHEUMATOID ARTHRITIS
     Dates: start: 20081014
  17. CHOLESTYRAMINE [Concomitant]
     Dosage: FORM : SACHETS

REACTIONS (1)
  - Depression [Recovered/Resolved]
